FAERS Safety Report 9266634 (Version 2)
Quarter: 2014Q2

REPORT INFORMATION
  Report Type: Spontaneous
  Country: US (occurrence: US)
  Receive Date: 20130502
  Receipt Date: 20140606
  Transmission Date: 20141212
  Serious: Yes (Other)
  Sender: FDA-Public Use
  Company Number: US-JNJFOC-20130400914

PATIENT
  Sex: Female
  Weight: 72.58 kg

DRUGS (7)
  1. SIMPONI [Suspect]
     Indication: PRODUCT USED FOR UNKNOWN INDICATION
     Dosage: 50MG/0.5ML
     Route: 058
  2. DICYCLOMINE [Concomitant]
     Indication: GASTROINTESTINAL PAIN
     Dosage: PRN
     Route: 048
  3. HYDROCHLOROTHIAZIDE [Concomitant]
     Route: 048
  4. LEFLUNOMIDE [Concomitant]
     Route: 048
  5. LISINOPRIL [Concomitant]
     Dosage: FOR 3 MONTHS (90 DAYS)
     Route: 048
  6. METOPROLOL TARTRATE [Concomitant]
     Dosage: TAKE 0.5 PILLS BY MOUTH
     Route: 048
  7. TRAMADOL [Concomitant]
     Dosage: 1-2 TAB, PRN
     Route: 048

REACTIONS (9)
  - Respiratory disorder [Recovering/Resolving]
  - Hypoxia [Recovering/Resolving]
  - Dyspnoea [Recovering/Resolving]
  - Dry skin [Unknown]
  - Cough [Not Recovered/Not Resolved]
  - Wheezing [Not Recovered/Not Resolved]
  - Body temperature increased [Unknown]
  - Drug dose omission [Unknown]
  - Malaise [Unknown]
